FAERS Safety Report 7715233-6 (Version None)
Quarter: 2011Q3

REPORT INFORMATION
  Report Type: 
  Country: None (occurrence: None)
  Receive Date: 20110829
  Receipt Date: 20110824
  Transmission Date: 20111222
  Serious: Yes (Death, Other)
  Sender: FDA-Public Use
  Company Number: PHHY2011BE13119

PATIENT
  Sex: Male
  Weight: 59 kg

DRUGS (9)
  1. MEDROL [Concomitant]
     Dosage: 8 MG, UNK
     Dates: start: 20100801
  2. CARDIOASPIRINE [Concomitant]
     Dosage: UNK
  3. ESTRACYT [Concomitant]
  4. TAXOTERE [Concomitant]
     Dosage: UNK
  5. LOSARTAN POTASSIUM [Concomitant]
     Dosage: UNK
  6. DECAPEPTYL [Concomitant]
  7. ZOMETA [Suspect]
     Indication: METASTASES TO BONE
     Dosage: 4 MG,
     Dates: start: 20060101, end: 20101108
  8. TAMSULOSIN HCL [Concomitant]
     Dosage: 0.4 MG, UNK
  9. OMEPRAZOLE [Concomitant]
     Dosage: 20 MG, UNK

REACTIONS (13)
  - INFECTION [None]
  - NEOPLASM MALIGNANT [None]
  - CONFUSIONAL STATE [None]
  - BONE DISORDER [None]
  - NEOPLASM PROGRESSION [None]
  - CEREBELLAR ISCHAEMIA [None]
  - HYPERTENSION [None]
  - PROSTATIC SPECIFIC ANTIGEN INCREASED [None]
  - GINGIVAL PAIN [None]
  - FISTULA [None]
  - PURULENT DISCHARGE [None]
  - OSTEONECROSIS OF JAW [None]
  - GINGIVAL INFECTION [None]
